FAERS Safety Report 18618483 (Version 1)
Quarter: 2020Q4

REPORT INFORMATION
  Report Type: Spontaneous
  Country: DE (occurrence: DE)
  Receive Date: 20201215
  Receipt Date: 20201215
  Transmission Date: 20210114
  Serious: Yes (Hospitalization, Other)
  Sender: FDA-Public Use
  Company Number: DE-MYLANLABS-2020M1101407

PATIENT
  Age: 64 Year
  Sex: Male

DRUGS (8)
  1. CARBAMAZEPINE. [Suspect]
     Active Substance: CARBAMAZEPINE
     Indication: NEURALGIA
     Dosage: UNK
  2. DIPYRONE [Suspect]
     Active Substance: DIPYRONE
     Indication: NEURALGIA
  3. TRAMADOL. [Suspect]
     Active Substance: TRAMADOL
     Indication: NEURALGIA
     Dosage: UNK
  4. DIPYRONE [Suspect]
     Active Substance: DIPYRONE
     Indication: BACK PAIN
     Dosage: UNK
  5. TRAMADOL. [Suspect]
     Active Substance: TRAMADOL
     Indication: BACK PAIN
  6. CARBAMAZEPINE. [Suspect]
     Active Substance: CARBAMAZEPINE
     Indication: BACK PAIN
  7. MOBIC [Suspect]
     Active Substance: MELOXICAM
     Indication: BACK PAIN
     Dosage: UNK
  8. MOBIC [Suspect]
     Active Substance: MELOXICAM
     Indication: NEURALGIA

REACTIONS (1)
  - Drug reaction with eosinophilia and systemic symptoms [Unknown]
